FAERS Safety Report 8443953-7 (Version None)
Quarter: 2012Q2

REPORT INFORMATION
  Report Type: 
  Country: None (occurrence: None)
  Receive Date: 20120618
  Receipt Date: 20120606
  Transmission Date: 20120825
  Serious: Yes (Other)
  Sender: FDA-Public Use
  Company Number: MX-MPIJNJ-2012-04093

PATIENT

DRUGS (1)
  1. VELCADE [Suspect]
     Indication: MULTIPLE MYELOMA
     Dosage: 1.2 MG/M2, CYCLIC
     Route: 042
     Dates: start: 20120501, end: 20120501

REACTIONS (1)
  - CATARACT [None]
